FAERS Safety Report 7105553-0 (Version None)
Quarter: 2010Q4

REPORT INFORMATION
  Report Type: 
  Country: None (occurrence: None)
  Receive Date: 20101116
  Receipt Date: 20101103
  Transmission Date: 20110411
  Serious: Yes (Hospitalization)
  Sender: FDA-Public Use
  Company Number: IT-CELGENEUS-083-C5013-10100698

PATIENT
  Sex: Female
  Weight: 74 kg

DRUGS (17)
  1. CC-5013 [Suspect]
     Indication: MULTIPLE MYELOMA
     Route: 048
     Dates: start: 20100729
  2. CC-5013 [Suspect]
     Route: 048
     Dates: start: 20100923
  3. CC-5013 [Suspect]
     Route: 048
     Dates: start: 20101102
  4. DEXAMETHASONE [Suspect]
     Indication: MULTIPLE MYELOMA
     Route: 065
     Dates: start: 20100729
  5. DEXAMETHASONE [Suspect]
     Route: 065
     Dates: start: 20100923
  6. DEXAMETHASONE [Suspect]
     Route: 065
     Dates: start: 20101102
  7. PROVISACOR [Concomitant]
     Route: 048
     Dates: start: 20090601, end: 20101001
  8. BACTRIM [Concomitant]
     Indication: ANTIBIOTIC PROPHYLAXIS
     Route: 048
     Dates: start: 20100729
  9. NEXIUM [Concomitant]
     Indication: PROPHYLAXIS
     Route: 048
     Dates: start: 20100729, end: 20100930
  10. NEXIUM [Concomitant]
     Route: 048
     Dates: start: 20101014
  11. BIFRIZIDE [Concomitant]
     Indication: HYPERTENSION
     Route: 048
     Dates: start: 20090101
  12. SINTROM [Concomitant]
     Indication: ATRIAL FIBRILLATION
     Route: 048
     Dates: start: 20070101
  13. SINTROM [Concomitant]
     Indication: PROPHYLAXIS
  14. CARDURA [Concomitant]
     Indication: HYPERTENSION
     Route: 048
     Dates: start: 20090101, end: 20100908
  15. EUTIROX [Concomitant]
     Route: 048
     Dates: start: 20100401, end: 20101013
  16. EUTIROX [Concomitant]
     Route: 048
     Dates: start: 20101014
  17. DIURESIX [Concomitant]
     Indication: HYPERTENSION
     Route: 048
     Dates: start: 20100909

REACTIONS (2)
  - ASTHMA [None]
  - BRONCHITIS [None]
